FAERS Safety Report 12948208 (Version 2)
Quarter: 2017Q1

REPORT INFORMATION
  Report Type: Other
  Country: CA (occurrence: CA)
  Receive Date: 20161117
  Receipt Date: 20170222
  Transmission Date: 20170428
  Serious: Yes (Hospitalization)
  Sender: FDA-Public Use
  Company Number: CA-APOTEX-2016AP014592

PATIENT
  Age: 76 Year
  Sex: Male

DRUGS (3)
  1. SPIRIVA [Concomitant]
     Active Substance: TIOTROPIUM BROMIDE MONOHYDRATE
     Indication: PRODUCT USED FOR UNKNOWN INDICATION
     Route: 065
  2. SYMBICORT [Concomitant]
     Active Substance: BUDESONIDE\FORMOTEROL FUMARATE DIHYDRATE
     Indication: PRODUCT USED FOR UNKNOWN INDICATION
     Route: 065
  3. APO-SALVENT [Suspect]
     Active Substance: ALBUTEROL
     Indication: EMPHYSEMA
     Dosage: UNK, PRN
     Route: 065

REACTIONS (4)
  - Dyspnoea [Unknown]
  - Product quality issue [Unknown]
  - Drug ineffective [Unknown]
  - Pulmonary congestion [Unknown]
